FAERS Safety Report 21264809 (Version 1)
Quarter: 2022Q3

REPORT INFORMATION
  Report Type: Spontaneous
  Country: US (occurrence: None)
  Receive Date: 20220828
  Receipt Date: 20220828
  Transmission Date: 20221027
  Serious: Yes (Other)
  Sender: FDA-Public Use
  Company Number: None

PATIENT
  Age: 59 Year
  Sex: Male

DRUGS (31)
  1. TALTZ [Suspect]
     Active Substance: IXEKIZUMAB
     Indication: Psoriatic arthropathy
     Dosage: INJECT 1 SYRINGE UNDER THE SKIN (SUBCUTANEOUS INJECTION) MONTHLY
     Route: 058
     Dates: start: 20201231
  2. ACCU-CHEK KIT NANO [Concomitant]
  3. ACETAMIN TAB [Concomitant]
  4. ASPIRIN LOW CHW [Concomitant]
  5. ATORVASTATIN [Concomitant]
     Active Substance: ATORVASTATIN
  6. CLOTRIM/BETA CRE [Concomitant]
  7. CLOTRIMAZOLE TRO [Concomitant]
  8. DILT-XR CAP [Concomitant]
  9. FAMOTIDINE TAB [Concomitant]
  10. FARXIGA TAB [Concomitant]
  11. HYDROCHLOROT CAP [Concomitant]
  12. INSULIN LISP INJ [Concomitant]
  13. INVOKANA TAB [Concomitant]
  14. LOSARTAN POT TAB [Concomitant]
  15. LOSARTAN/HCT TAB [Concomitant]
  16. MELOXICAM TAB [Concomitant]
  17. METAXALONE TAB [Concomitant]
  18. METHOTREXATE [Concomitant]
     Active Substance: METHOTREXATE
  19. MORPHABOND TAB [Concomitant]
  20. MORPHINE SULF CAP ER [Concomitant]
  21. MORPHINE SUL TAB ER [Concomitant]
  22. NUCYNTA TAB [Concomitant]
  23. OXYCODONE TAB [Concomitant]
  24. PREDNISONE [Concomitant]
     Active Substance: PREDNISONE
  25. PREGABALIN CAP [Concomitant]
  26. ROSUVASTATIN [Concomitant]
     Active Substance: ROSUVASTATIN
  27. SHINGRIX INJ [Concomitant]
  28. SOFTCLIX MIS LANCETS [Concomitant]
  29. TRAMADOL HCL TAB [Concomitant]
  30. TRESIBA FLEX INJ [Concomitant]
  31. VITAMIN D CAP [Concomitant]

REACTIONS (1)
  - Knee arthroplasty [None]

NARRATIVE: CASE EVENT DATE: 20220217
